FAERS Safety Report 18502723 (Version 1)
Quarter: 2020Q4

REPORT INFORMATION
  Report Type: Spontaneous
  Country: DE (occurrence: DE)
  Receive Date: 20201113
  Receipt Date: 20201113
  Transmission Date: 20210114
  Serious: Yes (Death, Hospitalization, Other)
  Sender: FDA-Public Use
  Company Number: PHHY2018DE019840

PATIENT
  Age: 62 Year
  Sex: Male
  Weight: 52 kg

DRUGS (18)
  1. PREDNISONE. [Concomitant]
     Active Substance: PREDNISONE
     Indication: PRODUCT USED FOR UNKNOWN INDICATION
     Route: 065
  2. ADVAIR HFA [Concomitant]
     Active Substance: FLUTICASONE PROPIONATE\SALMETEROL XINAFOATE
     Indication: PRODUCT USED FOR UNKNOWN INDICATION
     Route: 065
  3. PULMICORT TURBUHALER [Concomitant]
     Active Substance: BUDESONIDE
     Indication: PRODUCT USED FOR UNKNOWN INDICATION
     Route: 065
  4. VITAMIN B6 [Concomitant]
     Active Substance: PYRIDOXINE HYDROCHLORIDE
     Indication: PRODUCT USED FOR UNKNOWN INDICATION
     Dosage: 3.6 MG, ONCE/SINGLE (1-0-0) EVERY 2ND DAY
     Route: 065
  5. VIANI [Concomitant]
     Active Substance: FLUTICASONE PROPIONATE\SALMETEROL XINAFOATE
     Indication: CHRONIC OBSTRUCTIVE PULMONARY DISEASE
     Dosage: 2 DF, QD
     Route: 055
     Dates: start: 20170601
  6. VENTOLIN [Concomitant]
     Active Substance: ALBUTEROL SULFATE
     Indication: PRODUCT USED FOR UNKNOWN INDICATION
     Route: 065
  7. TRIENTINE [Concomitant]
     Active Substance: TRIENTINE
     Indication: HEPATO-LENTICULAR DEGENERATION
     Dosage: 300 MG, QD (2-0-2 DF QD)
     Route: 048
  8. TAMSULOSIN [Concomitant]
     Active Substance: TAMSULOSIN
     Indication: PRODUCT USED FOR UNKNOWN INDICATION
     Dosage: 0.4 MG, ONCE/SINGLE (0-1-0)
     Route: 065
  9. SPIRIVA [Concomitant]
     Active Substance: TIOTROPIUM BROMIDE MONOHYDRATE
     Indication: CHRONIC OBSTRUCTIVE PULMONARY DISEASE
     Dosage: 1 DF, QD
     Route: 055
     Dates: start: 20170601
  10. WILZIN [Concomitant]
     Active Substance: ZINC ACETATE
     Indication: HEPATO-LENTICULAR DEGENERATION
     Dosage: 50 MG, QD (1-1-1 DF QD)
     Route: 065
  11. PANTOPRAZOL [Concomitant]
     Active Substance: PANTOPRAZOLE SODIUM
     Indication: PRODUCT USED FOR UNKNOWN INDICATION
     Dosage: 40 MG, BID (1-0-1)
     Route: 065
  12. PREDNISOLON [Concomitant]
     Active Substance: PREDNISOLONE
     Indication: PRODUCT USED FOR UNKNOWN INDICATION
     Dosage: 20-0-10 UP TO 8 OCT, THEN 10-0-10 UP TO 10 OCT, THEN 10-0-0 UP TO 12 OCT, THEN 5-0-0 UP TO 14 OCT TH
     Route: 065
  13. ULTIBRO BREEZHALER [Suspect]
     Active Substance: GLYCOPYRRONIUM\INDACATEROL
     Indication: PNEUMONIA
     Dosage: UNK
     Route: 065
     Dates: start: 20170428
  14. ULTIBRO BREEZHALER [Suspect]
     Active Substance: GLYCOPYRRONIUM\INDACATEROL
     Indication: CHRONIC OBSTRUCTIVE PULMONARY DISEASE
     Dosage: 1 DF, QD
     Route: 065
     Dates: end: 20170601
  15. VITAMIN B-COMPLEX [Concomitant]
     Active Substance: DEXPANTHENOL\NIACINAMIDE\PYRIDOXINE HYDROCHLORIDE\RIBOFLAVIN 5^-PHOSPHATE SODIUM\THIAMINE HYDROCHLORIDE
     Indication: PRODUCT USED FOR UNKNOWN INDICATION
     Dosage: 30 MG, ONCE/SINGLE (1-0-0), EVERY 2ND DAY
     Route: 065
  16. RAMIPRIL. [Concomitant]
     Active Substance: RAMIPRIL
     Indication: PRODUCT USED FOR UNKNOWN INDICATION
     Dosage: 5 MG, ONCE/SINGLE (1-0-0)
     Route: 065
  17. GALZIN [Concomitant]
     Active Substance: ZINC ACETATE
     Indication: PRODUCT USED FOR UNKNOWN INDICATION
     Dosage: 50 MG, TID (1-1-1)
     Route: 065
  18. NITOMAN [Concomitant]
     Active Substance: TETRABENAZINE
     Indication: PRODUCT USED FOR UNKNOWN INDICATION
     Dosage: 0.25 MG, UNK, (1/2-1/2-1/2)
     Route: 065

REACTIONS (29)
  - General physical condition abnormal [Fatal]
  - Rib fracture [Unknown]
  - Cardiovascular disorder [Fatal]
  - Pulmonary fibrosis [Unknown]
  - Weight decreased [Unknown]
  - Drug intolerance [Unknown]
  - Metabolic alkalosis [Unknown]
  - Fatigue [Unknown]
  - Lung disorder [Fatal]
  - Loss of consciousness [Fatal]
  - Pneumonia [Unknown]
  - Bronchitis chronic [Unknown]
  - Rales [Unknown]
  - Hypoxia [Unknown]
  - Pulmonary function test decreased [Unknown]
  - Tenderness [Unknown]
  - Agitation [Unknown]
  - Pulmonary infarction [Fatal]
  - Bronchiectasis [Unknown]
  - Dyspnoea [Fatal]
  - Asphyxia [Fatal]
  - Bacterial infection [Recovering/Resolving]
  - Hyperthyroidism [Unknown]
  - Extrapyramidal disorder [Unknown]
  - Cough [Unknown]
  - Chronic obstructive pulmonary disease [Recovering/Resolving]
  - Mucosal atrophy [Unknown]
  - Fall [Unknown]
  - Emphysema [Unknown]

NARRATIVE: CASE EVENT DATE: 201709
